FAERS Safety Report 5067177-9 (Version None)
Quarter: 2006Q3

REPORT INFORMATION
  Report Type: 
  Country: None (occurrence: None)
  Receive Date: 20060727
  Receipt Date: 20060717
  Transmission Date: 20061208
  Serious: Yes (Other)
  Sender: FDA-Public Use
  Company Number: 2006087929

PATIENT
  Sex: Female
  Weight: 83.0083 kg

DRUGS (6)
  1. LIPITOR [Suspect]
     Indication: BLOOD CHOLESTEROL INCREASED
     Dosage: 20 MG (20 MG, FREQUENCY: QD INTERVAL: EVERY DAY)
     Dates: start: 20060201, end: 20060214
  2. ACCUPRIL [Concomitant]
  3. ESTROGENS [Concomitant]
  4. ASPIRIN [Concomitant]
  5. ALL OTHER THERAPEUTIC PRODUCTS [Concomitant]
  6. CELEBREX [Concomitant]

REACTIONS (10)
  - ALOPECIA [None]
  - BLOOD CHOLESTEROL INCREASED [None]
  - DISTURBANCE IN ATTENTION [None]
  - HYPERSENSITIVITY [None]
  - LOW DENSITY LIPOPROTEIN INCREASED [None]
  - MYOSITIS [None]
  - NAUSEA [None]
  - RASH [None]
  - SKIN DISORDER [None]
  - THOUGHT BLOCKING [None]
